FAERS Safety Report 19829872 (Version 2)
Quarter: 2021Q3

REPORT INFORMATION
  Report Type: Other
  Country: US (occurrence: US)
  Receive Date: 20210914
  Receipt Date: 20210927
  Transmission Date: 20211014
  Serious: Yes (Hospitalization, Other)
  Sender: FDA-Public Use
  Company Number: US-ROCHE-2909290

PATIENT
  Age: 69 Year
  Sex: Female
  Weight: 44.95 kg

DRUGS (5)
  1. ACTEMRA [Suspect]
     Active Substance: TOCILIZUMAB
  2. ACTEMRA [Suspect]
     Active Substance: TOCILIZUMAB
     Indication: AUTOIMMUNE DISORDER
     Dosage: INJECT 162MG SUBCUTANEOUSLY EVERY WEEK
     Route: 058
  3. ACTEMRA [Suspect]
     Active Substance: TOCILIZUMAB
     Indication: ARTHRITIS
     Dosage: HUSBAND GIVES INJECTION IN LEG
     Route: 065
     Dates: start: 2021, end: 202109
  4. TARGRETIN [Concomitant]
     Active Substance: BEXAROTENE
     Indication: T-CELL LYMPHOMA
     Dosage: 75 MG PER PILL, 5 PILLS A DAY, TAKEN ALTOGETHER WITH FOOD
     Route: 048
  5. ACTEMRA [Suspect]
     Active Substance: TOCILIZUMAB

REACTIONS (7)
  - Arthritis [Unknown]
  - Peripheral swelling [Unknown]
  - Hip fracture [Not Recovered/Not Resolved]
  - Infected skin ulcer [Recovered/Resolved]
  - T-cell lymphoma [Unknown]
  - Fall [Unknown]
  - Pain [Unknown]

NARRATIVE: CASE EVENT DATE: 202108
